FAERS Safety Report 7550526-7 (Version None)
Quarter: 2011Q2

REPORT INFORMATION
  Report Type: 
  Country: None (occurrence: None)
  Receive Date: 20110615
  Receipt Date: 20110606
  Transmission Date: 20111010
  Serious: Yes (Hospitalization, Other)
  Sender: FDA-Public Use
  Company Number: US-ELI_LILLY_AND_COMPANY-US201106002409

PATIENT
  Sex: Female

DRUGS (7)
  1. CYMBALTA [Suspect]
     Dosage: UNK, UNKNOWN
     Dates: start: 20110306, end: 20110501
  2. CYMBALTA [Suspect]
     Dosage: 60 MG, UNKNOWN
  3. COUMADIN [Concomitant]
  4. PLAQUENIL [Concomitant]
  5. CYMBALTA [Suspect]
     Indication: DEPRESSION
     Dosage: 120 MG, QD
     Dates: end: 20110301
  6. MORPHINE SULFATE [Concomitant]
  7. OXYCODONE HCL [Concomitant]

REACTIONS (14)
  - INFECTION [None]
  - INTERVERTEBRAL DISC DEGENERATION [None]
  - HEADACHE [None]
  - TREMOR [None]
  - SPINAL COLUMN STENOSIS [None]
  - SKIN DISCOLOURATION [None]
  - GAIT DISTURBANCE [None]
  - DENTAL CARE [None]
  - ARTHRITIS BACTERIAL [None]
  - CRYING [None]
  - HIP ARTHROPLASTY [None]
  - DIPLOPIA [None]
  - MASS [None]
  - JOINT SWELLING [None]
